FAERS Safety Report 6402745-0 (Version None)
Quarter: 2009Q4

REPORT INFORMATION
  Report Type: 
  Country: None (occurrence: None)
  Receive Date: 20091013
  Receipt Date: 20090925
  Transmission Date: 20100525
  Serious: Yes (Other)
  Sender: FDA-Public Use
  Company Number: PAR_03194_2009

PATIENT
  Age: 73 Year
  Sex: Female

DRUGS (4)
  1. CLONAZEPAM [Suspect]
     Indication: ANXIETY
     Dosage: 0.25 MG QD, IN THE EVENING, 0.5 MG QD, IN THE EVENING
  2. CLONAZEPAM [Suspect]
     Indication: FIBROMYALGIA
     Dosage: 0.25 MG QD, IN THE EVENING, 0.5 MG QD, IN THE EVENING
  3. KLONOPIN [Suspect]
     Indication: ANXIETY
     Dosage: 0.25 MG QD, IN THE EVENING
  4. KLONOPIN [Suspect]
     Indication: FIBROMYALGIA
     Dosage: 0.25 MG QD, IN THE EVENING

REACTIONS (6)
  - BALANCE DISORDER [None]
  - BREAST CANCER [None]
  - CLUMSINESS [None]
  - MEMORY IMPAIRMENT [None]
  - PAIN [None]
  - PRODUCT SUBSTITUTION ISSUE [None]
